FAERS Safety Report 9286515 (Version 1)
Quarter: 2013Q2

REPORT INFORMATION
  Report Type: Spontaneous
  Country: FR (occurrence: None)
  Receive Date: 20130508
  Receipt Date: 20130508
  Transmission Date: 20140414
  Serious: Yes (Other)
  Sender: FDA-Public Use
  Company Number: VAL_02505_2013

PATIENT
  Age: 24 Year
  Sex: Female

DRUGS (1)
  1. METOPROLOL [Suspect]
     Indication: SUPRAVENTRICULAR TACHYARRHYTHMIA

REACTIONS (2)
  - Maternal exposure during pregnancy [None]
  - Premature delivery [None]
